FAERS Safety Report 23467421 (Version 2)
Quarter: 2024Q1

REPORT INFORMATION
  Report Type: Spontaneous
  Country: US (occurrence: US)
  Receive Date: 20240201
  Receipt Date: 20240314
  Transmission Date: 20240410
  Serious: Yes (Life-Threatening, Other)
  Sender: FDA-Public Use
  Company Number: US-PFIZER INC-PV202400014868

PATIENT
  Age: 71 Year
  Sex: Female
  Weight: 84.807 kg

DRUGS (2)
  1. XELJANZ [Suspect]
     Active Substance: TOFACITINIB CITRATE
     Dosage: 5 MG
  2. METHOTREXATE SODIUM [Suspect]
     Active Substance: METHOTREXATE SODIUM
     Dosage: UNK

REACTIONS (9)
  - Near death experience [Unknown]
  - Pain [Unknown]
  - Bone erosion [Unknown]
  - Stress [Unknown]
  - Condition aggravated [Not Recovered/Not Resolved]
  - Illness [Unknown]
  - Bedridden [Unknown]
  - Chondropathy [Unknown]
  - Arthropathy [Unknown]
